FAERS Safety Report 10167437 (Version 2)
Quarter: 2014Q2

REPORT INFORMATION
  Report Type: Report from Study
  Country: BR (occurrence: BR)
  Receive Date: 20140512
  Receipt Date: 20140512
  Transmission Date: 20141212
  Serious: Yes (Death)
  Sender: FDA-Public Use
  Company Number: BR-ABBVIE-13P-020-1080824-00

PATIENT
  Age: 63 Year
  Sex: Male
  Weight: 65.5 kg

DRUGS (9)
  1. HUMIRA [Suspect]
     Indication: RHEUMATOID ARTHRITIS
     Route: 058
     Dates: start: 20121005
  2. PRELONE [Concomitant]
     Indication: ARTHRITIS
     Route: 048
     Dates: start: 2008
  3. MELOXICAM [Concomitant]
     Indication: ARTHRITIS
     Route: 048
     Dates: start: 2008
  4. LISADOR [Concomitant]
     Indication: ARTHRITIS
     Route: 048
     Dates: start: 2008
  5. ARAVA [Concomitant]
     Indication: ARTHRITIS
     Route: 048
     Dates: start: 2008
  6. LANSOPRAZOLE [Concomitant]
     Indication: ARTHRITIS
     Route: 048
     Dates: start: 2008
  7. CALCIUM CARBONATE [Concomitant]
     Indication: VITAMIN SUPPLEMENTATION
     Route: 048
     Dates: start: 2008
  8. VITAMIN B3 [Concomitant]
     Indication: VITAMIN SUPPLEMENTATION
     Route: 048
     Dates: start: 2008
  9. ALENDRONATE [Concomitant]
     Indication: PAIN
     Route: 048
     Dates: start: 2008

REACTIONS (1)
  - Pneumonia [Fatal]
